FAERS Safety Report 22518723 (Version 2)
Quarter: 2023Q4

REPORT INFORMATION
  Report Type: Report from Study
  Country: MY (occurrence: None)
  Receive Date: 20230605
  Receipt Date: 20231122
  Transmission Date: 20240110
  Serious: Yes (Other)
  Sender: FDA-Public Use
  Company Number: 2023A126613

PATIENT
  Sex: Female
  Weight: 42 kg

DRUGS (1)
  1. IMFINZI [Suspect]
     Active Substance: DURVALUMAB
     Route: 042
     Dates: start: 20221122, end: 202212

REACTIONS (2)
  - Disease progression [Unknown]
  - Drug ineffective [Unknown]
